FAERS Safety Report 13360670 (Version 1)
Quarter: 2017Q1

REPORT INFORMATION
  Report Type: Spontaneous
  Country: US (occurrence: US)
  Receive Date: 20170322
  Receipt Date: 20170322
  Transmission Date: 20170429
  Serious: No
  Sender: FDA-Public Use
  Company Number: US-ACTELION-A-US2017-148214

PATIENT
  Age: 85 Year
  Sex: Female

DRUGS (14)
  1. XANAX [Concomitant]
     Active Substance: ALPRAZOLAM
  2. TYLENOL [Concomitant]
     Active Substance: ACETAMINOPHEN
  3. ADEMPAS [Concomitant]
     Active Substance: RIOCIGUAT
  4. KLOR-CON [Concomitant]
     Active Substance: POTASSIUM CHLORIDE
  5. PROTONIX [Concomitant]
     Active Substance: PANTOPRAZOLE SODIUM
  6. LASIX [Concomitant]
     Active Substance: FUROSEMIDE
  7. VITAMIN D [Concomitant]
     Active Substance: CHOLECALCIFEROL
  8. OPSUMIT [Suspect]
     Active Substance: MACITENTAN
     Indication: PULMONARY ARTERIAL HYPERTENSION
     Dosage: 10 MG, QD
     Route: 048
     Dates: start: 20161222, end: 20170320
  9. INTEGRA [Concomitant]
     Active Substance: DIETARY SUPPLEMENT
  10. TEMAZEPAM. [Concomitant]
     Active Substance: TEMAZEPAM
  11. PACERONE [Concomitant]
     Active Substance: AMIODARONE HYDROCHLORIDE
  12. METOPROLOL TARTRATE. [Concomitant]
     Active Substance: METOPROLOL TARTRATE
  13. PROZAC [Concomitant]
     Active Substance: FLUOXETINE HYDROCHLORIDE
  14. OXYCODONE [Concomitant]
     Active Substance: OXYCODONE

REACTIONS (2)
  - Condition aggravated [Recovered/Resolved]
  - Oedema peripheral [Recovered/Resolved]

NARRATIVE: CASE EVENT DATE: 20161225
